FAERS Safety Report 9553027 (Version 1)
Quarter: 2013Q3

REPORT INFORMATION
  Report Type: Spontaneous
  Country: FR (occurrence: FR)
  Receive Date: 20130925
  Receipt Date: 20130925
  Transmission Date: 20140515
  Serious: Yes (Other)
  Sender: FDA-Public Use
  Company Number: FR-NOVOPROD-388026

PATIENT
  Age: 27 Year
  Sex: Female

DRUGS (1)
  1. GLUCAGEN [Suspect]
     Indication: PRODUCT USED FOR UNKNOWN INDICATION
     Dosage: 1 MG, QD
     Route: 042
     Dates: start: 20130801, end: 20130801

REACTIONS (2)
  - Malaise [Unknown]
  - Vomiting [Unknown]
